FAERS Safety Report 9222403 (Version 3)
Quarter: 2013Q3

REPORT INFORMATION
  Report Type: Spontaneous
  Country: US (occurrence: US)
  Receive Date: 20130410
  Receipt Date: 20130829
  Transmission Date: 20140515
  Serious: Yes (Other)
  Sender: FDA-Public Use
  Company Number: US-009507513-1304USA003373

PATIENT
  Sex: Female
  Weight: 108.84 kg

DRUGS (1)
  1. NUVARING [Suspect]
     Indication: CONTRACEPTION
     Dosage: UNK
     Route: 067
     Dates: start: 200605, end: 20111028

REACTIONS (18)
  - Mammoplasty [Unknown]
  - Deep vein thrombosis [Recovered/Resolved]
  - Rhinitis allergic [Unknown]
  - Heart rate irregular [Unknown]
  - Vasculitis [Unknown]
  - Varicose vein [Unknown]
  - Atrial fibrillation [Unknown]
  - Arrhythmia [Unknown]
  - Palpitations [Unknown]
  - Tachycardia [Unknown]
  - Bradycardia [Unknown]
  - Angiopathy [Unknown]
  - Spider vein [Unknown]
  - Fall [Unknown]
  - Leukopenia [Unknown]
  - Neutropenia [Unknown]
  - Insomnia [Unknown]
  - Hyperthyroidism [Unknown]
